FAERS Safety Report 24943430 (Version 1)
Quarter: 2025Q1

REPORT INFORMATION
  Report Type: Spontaneous
  Country: JP (occurrence: JP)
  Receive Date: 20250207
  Receipt Date: 20250207
  Transmission Date: 20250409
  Serious: Yes (Other)
  Sender: EISAI
  Company Number: JP-Eisai-202404666_LEN-EC_P_1

PATIENT
  Sex: Female
  Weight: 83 kg

DRUGS (22)
  1. LENVIMA [Suspect]
     Active Substance: LENVATINIB
     Indication: Endometrial cancer
     Route: 048
  2. LENVIMA [Suspect]
     Active Substance: LENVATINIB
     Route: 048
  3. LENVIMA [Suspect]
     Active Substance: LENVATINIB
     Route: 048
  4. LENVIMA [Suspect]
     Active Substance: LENVATINIB
     Route: 048
  5. LENVIMA [Suspect]
     Active Substance: LENVATINIB
     Route: 048
  6. LENVIMA [Suspect]
     Active Substance: LENVATINIB
     Route: 048
  7. LENVIMA [Suspect]
     Active Substance: LENVATINIB
     Route: 048
  8. LENVIMA [Suspect]
     Active Substance: LENVATINIB
     Route: 048
  9. LENVIMA [Suspect]
     Active Substance: LENVATINIB
     Route: 048
  10. LENVIMA [Suspect]
     Active Substance: LENVATINIB
     Route: 048
  11. LENVIMA [Suspect]
     Active Substance: LENVATINIB
     Route: 048
  12. LENVIMA [Suspect]
     Active Substance: LENVATINIB
     Route: 048
  13. LENVIMA [Suspect]
     Active Substance: LENVATINIB
     Route: 048
  14. LENVIMA [Suspect]
     Active Substance: LENVATINIB
     Route: 048
  15. LENVIMA [Suspect]
     Active Substance: LENVATINIB
     Route: 048
  16. LENVIMA [Suspect]
     Active Substance: LENVATINIB
     Route: 048
  17. LENVIMA [Suspect]
     Active Substance: LENVATINIB
     Route: 048
  18. LENVIMA [Suspect]
     Active Substance: LENVATINIB
     Route: 048
  19. LENVIMA [Suspect]
     Active Substance: LENVATINIB
     Route: 048
  20. LENVIMA [Suspect]
     Active Substance: LENVATINIB
     Route: 048
  21. LENVIMA [Suspect]
     Active Substance: LENVATINIB
     Route: 048
  22. PEMBROLIZUMAB [Concomitant]
     Active Substance: PEMBROLIZUMAB
     Indication: Endometrial cancer

REACTIONS (11)
  - Immune-mediated cholangitis [Unknown]
  - Hepatic enzyme increased [Recovered/Resolved]
  - Cutaneous symptom [Unknown]
  - Thyroid disorder [Unknown]
  - Myelosuppression [Unknown]
  - Arthralgia [Unknown]
  - Hypertension [Unknown]
  - Stomatitis [Unknown]
  - Palmar-plantar erythrodysaesthesia syndrome [Unknown]
  - Decreased appetite [Unknown]
  - Paraesthesia oral [Unknown]

NARRATIVE: CASE EVENT DATE: 20240601
